FAERS Safety Report 5343578-6 (Version None)
Quarter: 2007Q2

REPORT INFORMATION
  Report Type: 
  Country: None (occurrence: None)
  Receive Date: 20070604
  Receipt Date: 20070525
  Transmission Date: 20071010
  Serious: Yes (Other)
  Sender: FDA-Public Use
  Company Number: VE-ASTRAZENECA-2007UW12982

PATIENT
  Age: 48 Year
  Sex: Female

DRUGS (2)
  1. NEXIUM [Suspect]
     Indication: GASTRITIS
     Route: 048
     Dates: start: 20070128, end: 20070130
  2. SISTALCIN [Concomitant]
     Indication: MUSCLE SPASMS
     Dates: start: 20070125, end: 20070128

REACTIONS (4)
  - ERYTHEMA [None]
  - HYPOTENSION [None]
  - SKIN WARM [None]
  - TACHYCARDIA [None]
